FAERS Safety Report 6524470-8 (Version None)
Quarter: 2010Q1

REPORT INFORMATION
  Report Type: 
  Country: None (occurrence: None)
  Receive Date: 20100104
  Receipt Date: 20091201
  Transmission Date: 20100710
  Serious: No
  Sender: FDA-Public Use
  Company Number: US-BAYER-200917392BCC

PATIENT
  Age: 58 Year
  Sex: Male
  Weight: 129 kg

DRUGS (9)
  1. ALEVE (CAPLET) [Suspect]
     Indication: PAIN IN EXTREMITY
     Dosage: TOTAL DAILY DOSE: 440 MG  UNIT DOSE: 220 MG
     Route: 048
     Dates: start: 20090401, end: 20090101
  2. ALEVE (CAPLET) [Suspect]
     Dosage: TOTAL DAILY DOSE: 220 MG  UNIT DOSE: 220 MG
     Route: 048
     Dates: start: 20091129
  3. METFORMIN [Concomitant]
     Route: 065
  4. GLIPIZIDE [Concomitant]
     Route: 065
  5. UNKNOWN BLOOD PRESSURE MEDICATION [Concomitant]
     Route: 065
  6. UNKNOWN CHOLESTEROL MEDICATION [Concomitant]
     Route: 065
  7. UNKNOWN FUNGUS MEDICATION [Concomitant]
     Route: 065
  8. UNKNOWN PROSTATE MEDICATION [Concomitant]
     Route: 065
  9. ONE A DAY MEN'S HEALTH [Concomitant]
     Route: 065

REACTIONS (1)
  - BLISTER [None]
